FAERS Safety Report 20421195 (Version 1)
Quarter: 2022Q1

REPORT INFORMATION
  Report Type: Spontaneous
  Country: AU (occurrence: AU)
  Receive Date: 20220203
  Receipt Date: 20220203
  Transmission Date: 20220423
  Serious: Yes (Hospitalization, Other)
  Sender: FDA-Public Use
  Company Number: AU-MLMSERVICE-20220121-3325353-1

PATIENT
  Age: 59 Year
  Sex: Male

DRUGS (6)
  1. TRAMADOL [Suspect]
     Active Substance: TRAMADOL
     Indication: Gout
     Dosage: 800 MILLIGRAM, QD,EXTENDED-RELEASE
     Route: 065
  2. TRAMADOL [Suspect]
     Active Substance: TRAMADOL
     Dosage: 50 MILLIGRAM, QD RE-INSTITUTE
     Route: 042
  3. TRAMADOL [Suspect]
     Active Substance: TRAMADOL
     Dosage: 200 MILLIGRAM, BID
     Route: 042
  4. LORAZEPAM [Suspect]
     Active Substance: LORAZEPAM
     Indication: Agitation
     Dosage: 13 MILLIGRAM
     Route: 030
  5. DIAZEPAM [Suspect]
     Active Substance: DIAZEPAM
     Indication: Agitation
     Dosage: 30 MILLIGRAM
     Route: 048
  6. DROPERIDOL [Suspect]
     Active Substance: DROPERIDOL
     Indication: Agitation
     Dosage: 20 MILLIGRAM
     Route: 030

REACTIONS (8)
  - Drug withdrawal syndrome [Unknown]
  - Hypertension [Unknown]
  - Agitation [Recovered/Resolved]
  - Tachycardia [Unknown]
  - Delirium [Recovered/Resolved]
  - Paraesthesia [Unknown]
  - Incorrect dose administered [Unknown]
  - Drug ineffective [Unknown]
